FAERS Safety Report 23235983 (Version 4)
Quarter: 2024Q1

REPORT INFORMATION
  Report Type: Spontaneous
  Country: US (occurrence: US)
  Receive Date: 20231128
  Receipt Date: 20240206
  Transmission Date: 20240409
  Serious: No
  Sender: FDA-Public Use
  Company Number: US-PFIZER INC-PV202300087834

PATIENT
  Age: 69 Year
  Sex: Male
  Weight: 102.06 kg

DRUGS (3)
  1. BRAFTOVI [Suspect]
     Active Substance: ENCORAFENIB
     Dosage: 75 MG
  2. BRAFTOVI [Suspect]
     Active Substance: ENCORAFENIB
     Dosage: 450 MG, 1X/DAY
  3. MEKTOVI [Suspect]
     Active Substance: BINIMETINIB
     Indication: Gastric cancer
     Dosage: [TAKE THREE TABLETS, BY MOUTH, TWICE A DAY]
     Route: 048
     Dates: start: 202306

REACTIONS (2)
  - Neoplasm progression [Unknown]
  - Off label use [Unknown]
